FAERS Safety Report 17576785 (Version 12)
Quarter: 2023Q2

REPORT INFORMATION
  Report Type: Report from Study
  Country: KR (occurrence: None)
  Receive Date: 20200324
  Receipt Date: 20230606
  Transmission Date: 20230722
  Serious: Yes (Life-Threatening, Hospitalization)
  Sender: FDA-Public Use
  Company Number: KR-EISAI MEDICAL RESEARCH-EC-2020-072132

PATIENT
  Age: 74 Year
  Sex: Male
  Weight: 66.45 kg

DRUGS (8)
  1. LENVATINIB [Suspect]
     Active Substance: LENVATINIB
     Indication: Non-small cell lung cancer metastatic
     Route: 048
     Dates: start: 20200220, end: 20200311
  2. PEMBROLIZUMAB [Suspect]
     Active Substance: PEMBROLIZUMAB
     Indication: Non-small cell lung cancer metastatic
     Route: 041
     Dates: start: 20200220, end: 20200220
  3. TRAST [Concomitant]
     Dates: start: 20200119, end: 20200312
  4. MEGESTROL ACETATE [Concomitant]
     Active Substance: MEGESTROL ACETATE
     Dates: start: 20200129, end: 20200310
  5. OXYCODONE HYDROCHLORIDE [Concomitant]
     Active Substance: OXYCODONE HYDROCHLORIDE
     Dates: start: 20200129, end: 20200312
  6. NALOXONE HYDROCHLORIDE\OXYCODONE HYDROCHLORIDE [Concomitant]
     Active Substance: NALOXONE HYDROCHLORIDE\OXYCODONE HYDROCHLORIDE
     Dates: start: 20200204, end: 20200312
  7. NALOXONE HYDROCHLORIDE\OXYCODONE HYDROCHLORIDE [Concomitant]
     Active Substance: NALOXONE HYDROCHLORIDE\OXYCODONE HYDROCHLORIDE
     Dates: start: 20200220, end: 20200312
  8. DUPHALAC [Concomitant]
     Active Substance: LACTULOSE
     Dates: start: 20200220, end: 20200312

REACTIONS (1)
  - Stevens-Johnson syndrome [Recovered/Resolved]

NARRATIVE: CASE EVENT DATE: 20200223
